FAERS Safety Report 24442990 (Version 1)
Quarter: 2024Q4

REPORT INFORMATION
  Report Type: Spontaneous
  Country: US (occurrence: US)
  Receive Date: 20241016
  Receipt Date: 20241016
  Transmission Date: 20250115
  Serious: No
  Sender: SANDOZ
  Company Number: US-002147023-NVSC2023US250115

PATIENT
  Sex: Female

DRUGS (2)
  1. COMBIPATCH [Suspect]
     Active Substance: ESTRADIOL\NORETHINDRONE ACETATE
     Indication: Hot flush
     Dosage: 0.05/0.14 M TWICE PER WEEK (SUNDAYS AND THURSDAYS)
     Route: 062
     Dates: start: 2023
  2. COMBIPATCH [Suspect]
     Active Substance: ESTRADIOL\NORETHINDRONE ACETATE
     Indication: Vulvovaginal pruritus

REACTIONS (4)
  - Intermenstrual bleeding [Recovered/Resolved]
  - Menstrual disorder [Unknown]
  - Application site irritation [Recovered/Resolved]
  - Application site pruritus [Recovered/Resolved]

NARRATIVE: CASE EVENT DATE: 20230901
